FAERS Safety Report 25957733 (Version 2)
Quarter: 2025Q4

REPORT INFORMATION
  Report Type: Report from Study
  Country: US (occurrence: US)
  Receive Date: 20251024
  Receipt Date: 20251107
  Transmission Date: 20260118
  Serious: No
  Sender: MALLINCKRODT
  Company Number: US-MALLINCKRODT-MNK202506492

PATIENT
  Age: 32 Year
  Sex: Male

DRUGS (2)
  1. CORTICOTROPIN [Suspect]
     Active Substance: CORTICOTROPIN
     Indication: Nephrotic syndrome
     Route: 058
  2. CORTICOTROPIN [Suspect]
     Active Substance: CORTICOTROPIN
     Indication: Nephrotic syndrome

REACTIONS (4)
  - Onychoclasis [Unknown]
  - Nail bed bleeding [Not Recovered/Not Resolved]
  - Injection site scar [Unknown]
  - Rash [Unknown]

NARRATIVE: CASE EVENT DATE: 20250101
